FAERS Safety Report 25326364 (Version 1)
Quarter: 2025Q2

REPORT INFORMATION
  Report Type: Report from Study
  Country: US (occurrence: US)
  Receive Date: 20250516
  Receipt Date: 20250516
  Transmission Date: 20250717
  Serious: No
  Sender: INCYTE
  Company Number: US-EVENT-002539

PATIENT

DRUGS (5)
  1. JAKAFI [Suspect]
     Active Substance: RUXOLITINIB
     Indication: Polycythaemia vera
     Dosage: 20 MILLIGRAM, BID
     Route: 065
  2. JAKAFI [Suspect]
     Active Substance: RUXOLITINIB
     Dosage: 25 MILLIGRAM, BID
     Route: 065
  3. ASPIRIN [Concomitant]
     Active Substance: ASPIRIN
     Indication: Product used for unknown indication
     Route: 065
  4. TAMSULOSIN [Concomitant]
     Active Substance: TAMSULOSIN
     Indication: Prostate examination abnormal
     Route: 065
  5. HYDROXYUREA [Concomitant]
     Active Substance: HYDROXYUREA
     Indication: Polycythaemia vera
     Dosage: 500 MILLIGRAM, QD
     Route: 065

REACTIONS (2)
  - Platelet count increased [Unknown]
  - White blood cell count increased [Unknown]
